FAERS Safety Report 6426210-X (Version None)
Quarter: 2009Q4

REPORT INFORMATION
  Report Type: 
  Country: None (occurrence: None)
  Receive Date: 20091104
  Receipt Date: 20091026
  Transmission Date: 20100525
  Serious: Yes (Other)
  Sender: FDA-Public Use
  Company Number: US-JNJFOC-20090803655

PATIENT
  Sex: Female
  Weight: 56.25 kg

DRUGS (8)
  1. FENTANYL TRANSDERMAL SYSTEM [Suspect]
     Route: 062
  2. FENTANYL TRANSDERMAL SYSTEM [Suspect]
     Indication: NECK PAIN
     Route: 062
  3. SOMA [Concomitant]
     Indication: PAIN
     Route: 048
  4. LORAZEPAM [Concomitant]
     Indication: ANXIETY
     Route: 048
  5. NEURONTIN [Concomitant]
     Indication: APHASIA
     Route: 048
  6. LIDODERM [Concomitant]
     Indication: PAIN
     Route: 061
  7. ASPIRIN [Concomitant]
     Indication: CARDIAC DISORDER
     Route: 048
  8. DARVOCET [Concomitant]
     Indication: PAIN
     Dosage: DOSE: 100-650 MG
     Route: 048

REACTIONS (6)
  - CONVULSION [None]
  - INFECTION [None]
  - MONOPLEGIA [None]
  - RADIAL NERVE PALSY [None]
  - VOMITING [None]
  - WITHDRAWAL SYNDROME [None]
